FAERS Safety Report 8964192 (Version 1)
Quarter: 2012Q4

REPORT INFORMATION
  Report Type: 
  Country: US (occurrence: US)
  Receive Date: 20121214
  Receipt Date: 20121214
  Transmission Date: 20130627
  Serious: No
  Sender: FDA-Public Use
  Company Number: US-PFIZER INC-2012312028

PATIENT
  Age: 69 Year
  Sex: Male

DRUGS (2)
  1. TOVIAZ [Suspect]
     Indication: BLADDER INABILITY TO EMPTY
     Dosage: 8 mg, 1x/day
     Route: 048
     Dates: start: 2012
  2. VYTORIN [Concomitant]
     Indication: HIGH CHOLESTEROL
     Dosage: UNK

REACTIONS (1)
  - Dry mouth [Not Recovered/Not Resolved]
